FAERS Safety Report 8722704 (Version 1)
Quarter: 2012Q4

REPORT INFORMATION
  Report Type: 
  Country: US (occurrence: US)
  Receive Date: 20120912
  Receipt Date: 20120912
  Transmission Date: 20130627
  Serious: Yes (Other)
  Sender: FDA-Public Use
  Company Number: US-ROCHE-1099811

PATIENT
  Age: 61 Year
  Sex: Male

DRUGS (9)
  1. ACTIVASE [Suspect]
     Indication: PRODUCT USED FOR UNKNOWN INDICATION
     Route: 042
  2. LIDOCAINE [Concomitant]
  3. MORPHINE SULFATE [Concomitant]
  4. NITROGLYCERIN [Concomitant]
     Route: 042
  5. NITROGLYCERIN [Concomitant]
     Route: 060
  6. NITROGLYCERIN [Concomitant]
     Route: 065
  7. CAPOTEN [Concomitant]
  8. CARDIZEM [Concomitant]
  9. NITRO-PATCH [Concomitant]

REACTIONS (1)
  - Electrocardiogram P wave abnormal [Unknown]
